FAERS Safety Report 13182312 (Version 1)
Quarter: 2017Q1

REPORT INFORMATION
  Report Type: Spontaneous
  Country: US (occurrence: US)
  Receive Date: 20170203
  Receipt Date: 20170203
  Transmission Date: 20170428
  Serious: No
  Sender: FDA-Public Use
  Company Number: US-TEVA-728579ACC

PATIENT
  Age: 19 Year
  Sex: Female
  Weight: 45.4 kg

DRUGS (3)
  1. MULTIVITAMINS [Concomitant]
     Active Substance: VITAMINS
     Indication: SUPPLEMENTATION THERAPY
  2. PLAN B ONE-STEP [Suspect]
     Active Substance: LEVONORGESTREL
     Indication: POST COITAL CONTRACEPTION
     Dates: start: 20161228, end: 20161228
  3. ASPIRIN. [Concomitant]
     Active Substance: ASPIRIN
     Indication: SPERM CONCENTRATION DECREASED
     Dosage: 8 TABLET
     Dates: start: 20161227, end: 20161227

REACTIONS (3)
  - Abdominal distension [Not Recovered/Not Resolved]
  - Menstruation delayed [Not Recovered/Not Resolved]
  - Dysmenorrhoea [Not Recovered/Not Resolved]

NARRATIVE: CASE EVENT DATE: 20161228
